FAERS Safety Report 8989710 (Version 1)
Quarter: 2012Q4

REPORT INFORMATION
  Report Type: 
  Country: US (occurrence: US)
  Receive Date: 20121228
  Receipt Date: 20121228
  Transmission Date: 20130627
  Serious: No
  Sender: FDA-Public Use
  Company Number: US-VERTEX PHARMACEUTICALS INC.-2012-026631

PATIENT
  Sex: Male
  Weight: 98 kg

DRUGS (8)
  1. VX-950 (TELAPREVIR) [Suspect]
     Indication: HEPATITIS C
     Dosage: 750 mg, tid
     Route: 048
     Dates: start: 2012
  2. RIBAPAK [Suspect]
     Indication: HEPATITIS C
     Dosage: 600 mg, bid
     Dates: start: 2012
  3. PEGASYS [Suspect]
     Indication: HEPATITIS C
     Dosage: 180 ?g, qw
     Route: 058
     Dates: start: 2012
  4. AZOR                               /00595201/ [Concomitant]
     Dosage: 10-40 mg, qd
     Route: 048
  5. IBUPROFEN [Concomitant]
     Dosage: 200 mg, prn
     Route: 048
  6. GLIMEPIRIDE [Concomitant]
     Dosage: 2 mg, bid
     Route: 048
  7. OMEPRAZOLE [Concomitant]
     Dosage: 20 mg, qd
  8. ECOTRIN [Concomitant]
     Dosage: 325 mg, qd

REACTIONS (4)
  - Headache [Unknown]
  - Decreased appetite [Unknown]
  - Pruritus generalised [Unknown]
  - Nausea [Unknown]
